FAERS Safety Report 6965217-0 (Version None)
Quarter: 2010Q3

REPORT INFORMATION
  Report Type: 
  Country: None (occurrence: None)
  Receive Date: 20100903
  Receipt Date: 20100823
  Transmission Date: 20110219
  Serious: Yes (Hospitalization)
  Sender: FDA-Public Use
  Company Number: PHHY2010FR57062

PATIENT
  Sex: Male

DRUGS (8)
  1. EXELON [Suspect]
     Indication: DEMENTIA
     Dosage: 2 DF, QD
  2. FLOXYFRAL [Suspect]
     Indication: DEMENTIA
     Dosage: 50 MG, QD
     Dates: end: 20100601
  3. MIANSERIN [Suspect]
     Indication: DEMENTIA
     Dosage: 30 MG, QD
  4. ATACAND [Suspect]
     Indication: HYPERTENSION
     Dosage: 16 MG, QD
     Dates: end: 20100601
  5. BETASERC [Suspect]
     Dosage: 2 DF, QD
     Dates: end: 20100601
  6. ZYLORIC [Suspect]
     Dosage: 300 MG, QD
  7. ALFUZOSIN HCL [Suspect]
     Indication: DYSURIA
     Dosage: 2 DF, QD
     Dates: end: 20100601
  8. IBUPROFEN [Suspect]
     Dosage: 3 DF IN 48 HOURS
     Dates: start: 20100529

REACTIONS (11)
  - ASTHENIA [None]
  - CONJUNCTIVAL PALLOR [None]
  - DECREASED APPETITE [None]
  - EOSINOPHILIA [None]
  - GENERAL PHYSICAL HEALTH DETERIORATION [None]
  - HEPATITIS [None]
  - JAUNDICE [None]
  - LEUKOCYTOSIS [None]
  - PALLOR [None]
  - RENAL FAILURE ACUTE [None]
  - WEIGHT DECREASED [None]
